FAERS Safety Report 9191113 (Version 2)
Quarter: 2013Q2

REPORT INFORMATION
  Report Type: Spontaneous
  Country: US (occurrence: US)
  Receive Date: 20130326
  Receipt Date: 20130410
  Transmission Date: 20140414
  Serious: Yes (Other)
  Sender: FDA-Public Use
  Company Number: US-BAYER-2013-035074

PATIENT
  Age: 27 Year
  Sex: Female

DRUGS (3)
  1. BEYAZ [Suspect]
     Indication: MENSTRUATION IRREGULAR
     Dosage: UNK
     Route: 048
  2. BEYAZ [Suspect]
     Indication: MENSTRUATION IRREGULAR
     Route: 048
  3. BEYAZ [Suspect]
     Indication: MENSTRUATION IRREGULAR
     Route: 048

REACTIONS (5)
  - Vaginal haemorrhage [Recovered/Resolved]
  - Vaginal haemorrhage [Not Recovered/Not Resolved]
  - Incorrect dose administered [None]
  - Menorrhagia [Not Recovered/Not Resolved]
  - Product quality issue [None]
